FAERS Safety Report 20926312 (Version 3)
Quarter: 2024Q4

REPORT INFORMATION
  Report Type: Spontaneous
  Country: NL (occurrence: NL)
  Receive Date: 20220607
  Receipt Date: 20241009
  Transmission Date: 20250114
  Serious: Yes (Hospitalization)
  Sender: NOVA LABORATORIES
  Company Number: NL-Nova Laboratories Limited-2129548

PATIENT
  Age: 44 Year
  Sex: Female
  Weight: 107 kg

DRUGS (12)
  1. PURIXAN [Suspect]
     Active Substance: MERCAPTOPURINE
     Indication: Product used for unknown indication
     Dates: start: 20220417, end: 20220421
  2. INFLIXIMAB [Suspect]
     Active Substance: INFLIXIMAB
     Dates: start: 20220411, end: 20220425
  3. BUDESONIDE [Concomitant]
     Active Substance: BUDESONIDE
  4. TRAMADOL [Concomitant]
     Active Substance: TRAMADOL
  5. METOCLOPRAMIDE [Concomitant]
     Active Substance: METOCLOPRAMIDE
  6. ONDANSETRON [Concomitant]
     Active Substance: ONDANSETRON
  7. BECLOMETHASONE DIPROPIONATE [Concomitant]
     Active Substance: BECLOMETHASONE DIPROPIONATE
  8. MERCAPTOPURINE [Suspect]
     Active Substance: MERCAPTOPURINE
     Dates: start: 20220427, end: 20220509
  9. MERCAPTOPURINE [Suspect]
     Active Substance: MERCAPTOPURINE
  10. MERCAPTOPURINE [Suspect]
     Active Substance: MERCAPTOPURINE
     Dates: start: 20220422, end: 20220427
  11. MERCAPTOPURINE [Suspect]
     Active Substance: MERCAPTOPURINE
  12. MERCAPTOPURINE [Suspect]
     Active Substance: MERCAPTOPURINE

REACTIONS (6)
  - Vomiting [Not Recovered/Not Resolved]
  - Nausea [Unknown]
  - Malaise [Unknown]
  - Asthenia [Unknown]
  - Headache [Unknown]
  - Dizziness [Unknown]

NARRATIVE: CASE EVENT DATE: 20220510
